FAERS Safety Report 8113297-1 (Version None)
Quarter: 2012Q1

REPORT INFORMATION
  Report Type: 
  Country: None (occurrence: None)
  Receive Date: 20120203
  Receipt Date: 20120127
  Transmission Date: 20120608
  Serious: Yes (Hospitalization)
  Sender: FDA-Public Use
  Company Number: PHEH2012US002518

PATIENT
  Sex: Female

DRUGS (2)
  1. TRILEPTAL [Suspect]
     Dosage: 150 MG, UNK
  2. TRILEPTAL [Suspect]
     Dosage: 600 MG, UNK

REACTIONS (2)
  - LIVER DISORDER [None]
  - SKIN EXFOLIATION [None]
